FAERS Safety Report 14235157 (Version 6)
Quarter: 2019Q3

REPORT INFORMATION
  Report Type: Report from Study
  Country: FR (occurrence: FR)
  Receive Date: 20171129
  Receipt Date: 20190911
  Transmission Date: 20191004
  Serious: Yes (Death, Hospitalization, Other)
  Sender: FDA-Public Use
  Company Number: FR-BRISTOL-MYERS SQUIBB COMPANY-BMS-2017-088348

PATIENT
  Age: 78 Year
  Sex: Male

DRUGS (2)
  1. NIVOLUMAB [Suspect]
     Active Substance: NIVOLUMAB
     Indication: LUNG NEOPLASM MALIGNANT
     Dosage: 210 MG, Q2WK
     Route: 042
     Dates: start: 20170908, end: 20171006
  2. NIVOLUMAB [Suspect]
     Active Substance: NIVOLUMAB
     Indication: PRODUCT USED FOR UNKNOWN INDICATION
     Dosage: 1 DF=1 X100MG,2X40MG AND 1X40MG
     Route: 042
     Dates: start: 20171006

REACTIONS (5)
  - Acute respiratory failure [Fatal]
  - Tremor [Not Recovered/Not Resolved]
  - Chronic obstructive pulmonary disease [Recovered/Resolved]
  - Dyspnoea [Fatal]
  - Headache [Not Recovered/Not Resolved]

NARRATIVE: CASE EVENT DATE: 20170916
